FAERS Safety Report 14300708 (Version 1)
Quarter: 2017Q4

REPORT INFORMATION
  Report Type: Spontaneous
  Country: FR (occurrence: FR)
  Receive Date: 20171219
  Receipt Date: 20171219
  Transmission Date: 20180321
  Serious: Yes (Other)
  Sender: FDA-Public Use
  Company Number: PHHY2017FR187290

PATIENT
  Sex: Female

DRUGS (16)
  1. METHOTREXATE. [Suspect]
     Active Substance: METHOTREXATE
     Dosage: 20 MG, UNK
     Route: 048
  2. DEXAMETHASONE. [Suspect]
     Active Substance: DEXAMETHASONE
     Dosage: 4.5 MG, UNK
     Route: 048
     Dates: start: 20170816, end: 20170820
  3. VINCRISTINE [Suspect]
     Active Substance: VINCRISTINE
     Dosage: 1.2 MG, UNK
     Route: 042
     Dates: start: 20170725, end: 20170725
  4. VINCRISTINE [Suspect]
     Active Substance: VINCRISTINE
     Dosage: 1.2 MG, UNK
     Route: 042
     Dates: start: 20170823, end: 20170823
  5. VINCRISTINE [Suspect]
     Active Substance: VINCRISTINE
     Dosage: 1.2 MG, UNK
     Route: 042
     Dates: start: 20170913, end: 20170913
  6. METHOTREXATE. [Suspect]
     Active Substance: METHOTREXATE
     Indication: ACUTE LYMPHOCYTIC LEUKAEMIA
     Dosage: 11 MG, UNK
     Route: 037
  7. VINCRISTINE [Suspect]
     Active Substance: VINCRISTINE
     Indication: ACUTE LYMPHOCYTIC LEUKAEMIA
     Dosage: 1.2 MG, UNK
     Route: 042
     Dates: start: 20170718, end: 20170718
  8. PEGASPARGASE [Suspect]
     Active Substance: PEGASPARGASE
     Dosage: 2050 IU, QD
     Route: 042
     Dates: start: 20170823, end: 20170823
  9. PEGASPARGASE [Suspect]
     Active Substance: PEGASPARGASE
     Dosage: 2050 IU, QD
     Route: 042
     Dates: start: 20170920, end: 20170920
  10. ZOPHREN [Concomitant]
     Active Substance: ONDANSETRON
     Indication: NAUSEA
     Route: 065
  11. VINCRISTINE [Suspect]
     Active Substance: VINCRISTINE
     Dosage: 1.2 MG, UNK
     Route: 042
     Dates: start: 20170920, end: 20170920
  12. DEXAMETHASONE. [Suspect]
     Active Substance: DEXAMETHASONE
     Indication: ACUTE LYMPHOCYTIC LEUKAEMIA
     Dosage: 4.5 MG, UNK
     Route: 048
     Dates: start: 20170717, end: 20170721
  13. VINCRISTINE [Suspect]
     Active Substance: VINCRISTINE
     Dosage: 1.2 MG, UNK
     Route: 042
     Dates: start: 20170816, end: 20170816
  14. MERCAPTOPURINE MONOHYDRATE [Suspect]
     Active Substance: MERCAPTOPURINE
     Indication: ACUTE LYMPHOCYTIC LEUKAEMIA
     Dosage: 38 MG, UNK
     Route: 048
     Dates: start: 20170816, end: 20170906
  15. DEXAMETHASONE. [Suspect]
     Active Substance: DEXAMETHASONE
     Dosage: 4.5 MG, UNK
     Route: 048
     Dates: start: 20170913, end: 20170917
  16. PEGASPARGASE [Suspect]
     Active Substance: PEGASPARGASE
     Indication: ACUTE LYMPHOCYTIC LEUKAEMIA
     Dosage: 2050 IU, QD
     Route: 042
     Dates: start: 20170725, end: 20170725

REACTIONS (1)
  - Drug hypersensitivity [Recovered/Resolved]

NARRATIVE: CASE EVENT DATE: 20170920
